FAERS Safety Report 12108907 (Version 2)
Quarter: 2016Q1

REPORT INFORMATION
  Report Type: Spontaneous
  Country: JP (occurrence: JP)
  Receive Date: 20160224
  Receipt Date: 20160321
  Transmission Date: 20160526
  Serious: Yes (Life-Threatening, Hospitalization)
  Sender: FDA-Public Use
  Company Number: JP-ROCHE-1715938

PATIENT
  Age: 69 Year
  Sex: Female
  Weight: 44 kg

DRUGS (2)
  1. XELODA [Suspect]
     Active Substance: CAPECITABINE
     Indication: BREAST CANCER
     Dosage: DOSAGE IS UNCERTAIN. ?3 DAYS ADMINISTRATION FOLLOWED BY 1 DAYS REST A
     Route: 048
     Dates: start: 20150615, end: 20160214
  2. ZOMETA [Concomitant]
     Active Substance: ZOLEDRONIC ACID
     Dosage: DOSAGE IS UNCERTAIN.
     Route: 065
     Dates: start: 20150615

REACTIONS (2)
  - Hepatic function abnormal [Recovered/Resolved]
  - Pneumonia [Recovered/Resolved]

NARRATIVE: CASE EVENT DATE: 20160215
